FAERS Safety Report 7932356-7 (Version None)
Quarter: 2011Q4

REPORT INFORMATION
  Report Type: 
  Country: None (occurrence: None)
  Receive Date: 20111121
  Receipt Date: 20111108
  Transmission Date: 20120403
  Serious: Yes (Death, Hospitalization)
  Sender: FDA-Public Use
  Company Number: US-ELI_LILLY_AND_COMPANY-US201111002413

PATIENT
  Age: 64 Year
  Sex: Male
  Weight: 66.4 kg

DRUGS (2)
  1. GEMCITABINE HYDROCHLORIDE [Suspect]
     Indication: ADENOCARCINOMA PANCREAS
     Dosage: 1000 MG/M2, OVER 30 MIN ON DAY 1, 8 AND 15.
     Route: 042
     Dates: start: 20110628, end: 20110718
  2. OTHER PHARMA COMPANY INV DRUG [Suspect]
     Indication: ADENOCARCINOMA PANCREAS
     Dosage: UNK
     Dates: start: 20110628, end: 20110718

REACTIONS (6)
  - ABDOMINAL PAIN [None]
  - BLOOD BILIRUBIN INCREASED [None]
  - SINUS TACHYCARDIA [None]
  - DEATH [None]
  - EMBOLISM [None]
  - DEEP VEIN THROMBOSIS [None]
